FAERS Safety Report 15677780 (Version 1)
Quarter: 2018Q4

REPORT INFORMATION
  Report Type: Spontaneous
  Country: FR (occurrence: FR)
  Receive Date: 20181130
  Receipt Date: 20181130
  Transmission Date: 20190205
  Serious: Yes (Hospitalization)
  Sender: FDA-Public Use
  Company Number: FR-OTSUKA-2018_037462

PATIENT
  Age: 9 Year
  Sex: Male
  Weight: 37 kg

DRUGS (5)
  1. ABILIFY [Suspect]
     Active Substance: ARIPIPRAZOLE
     Indication: PRODUCT USED FOR UNKNOWN INDICATION
     Dosage: 10 MG, QD
     Route: 048
     Dates: start: 20181016, end: 20181030
  2. QUASYM [Suspect]
     Active Substance: METHYLPHENIDATE HYDROCHLORIDE
     Indication: ATTENTION DEFICIT/HYPERACTIVITY DISORDER
     Dosage: 50 MG, QD
     Route: 048
     Dates: end: 20181106
  3. TERCIAN [Suspect]
     Active Substance: CYAMEMAZINE
     Dosage: 25 MG, QD
     Route: 048
     Dates: start: 20181106
  4. TERCIAN [Suspect]
     Active Substance: CYAMEMAZINE
     Indication: ATTENTION DEFICIT/HYPERACTIVITY DISORDER
     Dosage: 150 MG, QD
     Route: 048
     Dates: start: 20181106
  5. AKINETON [Suspect]
     Active Substance: BIPERIDEN HYDROCHLORIDE
     Indication: PARKINSONISM
     Dosage: 8 MG, QD
     Route: 048
     Dates: end: 20181106

REACTIONS (3)
  - Abnormal behaviour [Recovering/Resolving]
  - Dyskinesia [Recovering/Resolving]
  - Product use issue [Unknown]

NARRATIVE: CASE EVENT DATE: 20181024
